FAERS Safety Report 5494871-8 (Version None)
Quarter: 2007Q4

REPORT INFORMATION
  Report Type: 
  Country: None (occurrence: None)
  Receive Date: 20071024
  Receipt Date: 20071015
  Transmission Date: 20080405
  Serious: Yes (Disabling, Other)
  Sender: FDA-Public Use
  Company Number: JP-ASTRAZENECA-2007AP05489

PATIENT
  Age: 76 Year
  Sex: Female

DRUGS (4)
  1. IRESSA [Suspect]
     Indication: LUNG ADENOCARCINOMA
     Route: 048
  2. STOGAR [Concomitant]
     Indication: GASTRITIS
     Dosage: DOSE UNKNOWN
     Route: 048
  3. SIGMART [Concomitant]
     Dosage: DOSE UNKNOWN
     Route: 048
  4. KAMAG G [Concomitant]
     Indication: CONSTIPATION
     Route: 048

REACTIONS (4)
  - ALTERED STATE OF CONSCIOUSNESS [None]
  - CEREBRAL INFARCTION [None]
  - LYMPHADENOPATHY [None]
  - SUPERIOR VENA CAVAL OCCLUSION [None]
